FAERS Safety Report 5761419-X (Version None)
Quarter: 2008Q2

REPORT INFORMATION
  Report Type: 
  Country: None (occurrence: None)
  Receive Date: 20080606
  Receipt Date: 20080604
  Transmission Date: 20081010
  Serious: Yes (Other)
  Sender: FDA-Public Use
  Company Number: US-ASTRAZENECA-2008UW11230

PATIENT

DRUGS (2)
  1. ARIMIDEX [Suspect]
  2. EFFEXOR XR [Suspect]
     Route: 048

REACTIONS (7)
  - ARTHRALGIA [None]
  - BEDRIDDEN [None]
  - HEADACHE [None]
  - HOT FLUSH [None]
  - LETHARGY [None]
  - VERTIGO [None]
  - VOMITING [None]
